FAERS Safety Report 9992934 (Version 1)
Quarter: 2014Q1

REPORT INFORMATION
  Report Type: Report from Study
  Country: US (occurrence: US)
  Receive Date: 20140310
  Receipt Date: 20140310
  Transmission Date: 20141002
  Serious: No
  Sender: FDA-Public Use
  Company Number: US-ABBVIE-13P-163-1116257-00

PATIENT
  Sex: Female
  Weight: 77.18 kg

DRUGS (3)
  1. LUPRON DEPOT [Suspect]
     Indication: UTERINE LEIOMYOMA
     Route: 030
  2. REMERON [Concomitant]
     Indication: ANXIETY
  3. LEXAPRO [Concomitant]
     Indication: DEPRESSION

REACTIONS (4)
  - Feeling abnormal [Not Recovered/Not Resolved]
  - Personality change [Not Recovered/Not Resolved]
  - Hyperhidrosis [Not Recovered/Not Resolved]
  - Hot flush [Not Recovered/Not Resolved]
